FAERS Safety Report 8962739 (Version 2)
Quarter: 2014Q2

REPORT INFORMATION
  Report Type: Report from Study
  Country: BE (occurrence: BE)
  Receive Date: 20121213
  Receipt Date: 20131018
  Transmission Date: 20141212
  Serious: Yes (Death, Hospitalization)
  Sender: FDA-Public Use
  Company Number: BE-PFIZER INC-2012310973

PATIENT
  Age: 67 Year
  Sex: Female
  Weight: 72 kg

DRUGS (46)
  1. SOLU-MEDROL [Suspect]
     Indication: PROPHYLAXIS AGAINST TRANSPLANT REJECTION
     Dosage: 500 MG, 1X/DAY
     Route: 042
     Dates: start: 20030920
  2. SOLU-MEDROL [Suspect]
     Dosage: 40 MG, 1X/DAY
     Route: 042
     Dates: start: 20030922, end: 20030922
  3. SOLU-MEDROL [Suspect]
     Dosage: 80 MG, 1X/DAY
     Route: 042
     Dates: end: 20031229
  4. MEDROL [Suspect]
     Indication: PROPHYLAXIS AGAINST TRANSPLANT REJECTION
     Dosage: 32 MG, 1X/DAY
     Route: 048
     Dates: start: 20030923
  5. MEDROL [Suspect]
     Dosage: 10 MG, 1X/DAY
     Route: 048
     Dates: end: 20040117
  6. SOLU-CORTEF [Suspect]
     Indication: PROPHYLAXIS AGAINST TRANSPLANT REJECTION
     Dosage: 100 MG, 2X/DAY
     Route: 042
     Dates: start: 20040115, end: 20040117
  7. MYCOPHENOLATE MOFETIL [Suspect]
     Indication: PROPHYLAXIS AGAINST TRANSPLANT REJECTION
     Dosage: 500 MG, 2X/DAY
     Route: 048
     Dates: start: 20030920
  8. MYCOPHENOLATE MOFETIL [Suspect]
     Dosage: 1 G, 2X/DAY
     Route: 048
     Dates: start: 20030921
  9. MYCOPHENOLATE MOFETIL [Suspect]
     Dosage: 500 MG, 3X/DAY
     Route: 048
     Dates: start: 20031225
  10. MYCOPHENOLATE MOFETIL [Suspect]
     Dosage: 1 G, 2X/DAY
     Route: 048
     Dates: start: 20031226
  11. MYCOPHENOLATE MOFETIL [Suspect]
     Dosage: 500 MG, 3X/DAY
     Route: 048
     Dates: start: 20040110
  12. MYCOPHENOLATE MOFETIL [Suspect]
     Dosage: 500 MG, 2X/DAY
     Route: 048
     Dates: start: 20040112
  13. MYCOPHENOLATE MOFETIL [Suspect]
     Dosage: 500 MG, 3X/DAY
     Route: 048
     Dates: start: 20040114
  14. MYCOPHENOLATE MOFETIL [Suspect]
     Dosage: 500 MG, 2X/DAY
     Route: 048
     Dates: start: 20040116, end: 20040117
  15. CICLOSPORIN [Suspect]
     Indication: PROPHYLAXIS AGAINST TRANSPLANT REJECTION
     Dosage: 300 MG, 1X/DAY
     Route: 048
     Dates: start: 20030920
  16. CICLOSPORIN [Suspect]
     Dosage: 75 MG, 2X/DAY
     Route: 048
     Dates: end: 20040117
  17. 1 ALPHA-LEO [Concomitant]
     Route: 048
  18. CACO3 [Concomitant]
     Route: 048
  19. LIPITOR [Concomitant]
     Route: 048
  20. TAVANIC [Concomitant]
     Dosage: 250 MG, 1X/DAY
     Route: 048
     Dates: start: 20031220, end: 20031231
  21. TAVANIC [Concomitant]
     Dosage: 250 MG, 1X/DAY
     Route: 048
     Dates: start: 20040116, end: 20040117
  22. TILDIEM RETARD [Concomitant]
     Dosage: 200 MG, 1X/DAY
     Route: 048
     Dates: start: 20030928, end: 20040115
  23. OMEPRAZOLE [Concomitant]
     Dosage: 10 MG, 1X/DAY
     Route: 048
  24. NYSTATIN [Concomitant]
     Dosage: 1 DF, 2X/DAY
     Route: 048
     Dates: start: 20031225, end: 20040107
  25. BURINEX [Concomitant]
     Dosage: 1 MG, 2X/DAY
     Route: 048
     Dates: start: 20031229, end: 20040114
  26. BURINEX [Concomitant]
     Dosage: 5 MG, 1X/DAY
     Route: 048
     Dates: start: 20040114
  27. INSULIN [Concomitant]
     Dosage: 38 IU, 1X/DAY
     Route: 058
     Dates: start: 20031209, end: 20040117
  28. CYMEVENE [Concomitant]
     Dosage: 315 MG, 2X/DAY
     Route: 042
     Dates: start: 20030921, end: 20030922
  29. CYMEVENE [Concomitant]
     Dosage: 100 MG, 2X/DAY
     Route: 042
     Dates: start: 20031224, end: 20040117
  30. BETAHISTINE [Concomitant]
     Dosage: 6 MG, 1X/DAY
     Route: 048
  31. FLURA-LOZ [Concomitant]
     Dosage: 5 MG, 1X/DAY
     Route: 048
     Dates: start: 20031226, end: 20040112
  32. BETASERC [Concomitant]
     Dosage: 8 MG, 1X/DAY
     Route: 048
  33. SIBELIUM [Concomitant]
     Dosage: 5 MG, 1X/DAY
     Route: 048
  34. FRAXIPARINE (NADROPARIN CALCIUM) [Concomitant]
     Dosage: 0.4 ML, 1X/DAY
     Route: 058
     Dates: start: 20030922, end: 20031003
  35. FRAXIPARINE (NADROPARIN CALCIUM) [Concomitant]
     Dosage: 0.4 ML, 1X/DAY
     Route: 058
     Dates: start: 20031225
  36. HUMULIN [Concomitant]
     Dosage: 10 IU, 3X/DAY
     Route: 058
  37. INSULATARD [Concomitant]
     Dosage: 8 IU, 1X/DAY
     Route: 058
  38. AUGMENTIN [Concomitant]
     Dosage: 500 MG, 3X/DAY
     Route: 048
     Dates: start: 20031010, end: 20031018
  39. BACTRIM FORTE [Concomitant]
     Dosage: 400 MG, 1X/DAY
     Route: 048
     Dates: start: 20030923, end: 20031226
  40. CEFACIDAL [Concomitant]
     Dosage: 1 G, 1X/DAY
     Route: 042
     Dates: start: 20030920, end: 20030921
  41. CLEXANE [Concomitant]
     Dosage: 40 MG, 1X/DAY
     Route: 058
     Dates: start: 20030921, end: 20030922
  42. CLEXANE [Concomitant]
     Dosage: 40 MG, 1X/DAY
     Route: 058
     Dates: start: 20040116, end: 20040117
  43. LASIX [Concomitant]
     Dosage: 40 MG, 1X/DAY
     Route: 048
     Dates: start: 20031006, end: 20040114
  44. LASIX [Concomitant]
     Dosage: 20 MG, 1X/DAY
     Route: 042
     Dates: start: 20040115, end: 20040117
  45. ZOCOR [Concomitant]
     Dosage: 20 MG, 1X/DAY
     Route: 048
     Dates: start: 20030924, end: 20031002
  46. ZOVIRAX [Concomitant]
     Dosage: 800 MG, 3X/DAY
     Route: 048
     Dates: start: 20030923, end: 20031020

REACTIONS (10)
  - Cytomegalovirus infection [Fatal]
  - Diabetes mellitus [Fatal]
  - Ketoacidosis [Recovered/Resolved]
  - Septic shock [Fatal]
  - Pyelonephritis [Fatal]
  - Complications of transplanted kidney [Fatal]
  - Blood creatinine increased [Fatal]
  - Abdominal pain upper [Recovered/Resolved]
  - Ureteric obstruction [Recovered/Resolved]
  - Obstructive uropathy [Recovered/Resolved]
